FAERS Safety Report 8601355-4 (Version None)
Quarter: 2012Q3

REPORT INFORMATION
  Report Type: 
  Country: None (occurrence: None)
  Receive Date: 20120806
  Receipt Date: 20120806
  Transmission Date: 20120928
  Serious: Yes (Hospitalization)
  Sender: FDA-Public Use
  Company Number: None

PATIENT
  Age: 72 Year
  Sex: Male

DRUGS (1)
  1. ZYTIGA [Suspect]
     Dosage: 1000MG DAILY PO
     Route: 048
     Dates: start: 20120702, end: 20120724

REACTIONS (9)
  - FALL [None]
  - HAEMOGLOBIN DECREASED [None]
  - THROMBOSIS [None]
  - HEART RATE INCREASED [None]
  - URTICARIA [None]
  - DYSPNOEA [None]
  - RIB FRACTURE [None]
  - OEDEMA PERIPHERAL [None]
  - TRAUMATIC LUNG INJURY [None]
